FAERS Safety Report 11218609 (Version 2)
Quarter: 2015Q3

REPORT INFORMATION
  Report Type: Spontaneous
  Country: DE (occurrence: DE)
  Receive Date: 20150625
  Receipt Date: 20150721
  Transmission Date: 20151125
  Serious: Yes (Other)
  Sender: FDA-Public Use
  Company Number: DE-PFIZER INC-2015207054

PATIENT
  Age: 55 Year
  Sex: Female

DRUGS (4)
  1. ISOPTIN RR [Concomitant]
     Dosage: 240 MG, 1-0-0
  2. METFORMIN [Concomitant]
     Active Substance: METFORMIN HYDROCHLORIDE
     Dosage: 1000 MG, 1/2-0-1
     Dates: start: 2006
  3. LATANOPROST PFIZER [Suspect]
     Active Substance: LATANOPROST
     Indication: GLAUCOMA
     Dosage: 1 DF, IN THE EVENING
     Dates: start: 2012, end: 201507
  4. VALSARTAN. [Concomitant]
     Active Substance: VALSARTAN
     Dosage: 160 MG, 1-0-0
     Dates: start: 2015

REACTIONS (3)
  - Migraine with aura [Not Recovered/Not Resolved]
  - Vision blurred [Recovering/Resolving]
  - Abnormal sensation in eye [Recovering/Resolving]
